FAERS Safety Report 11836126 (Version 1)
Quarter: 2015Q4

REPORT INFORMATION
  Report Type: Spontaneous
  Country: US (occurrence: None)
  Receive Date: 20151214
  Receipt Date: 20151214
  Transmission Date: 20160305
  Serious: Yes (Hospitalization)
  Sender: FDA-Public Use
  Company Number: None

PATIENT
  Age: 33 Year
  Sex: Male

DRUGS (1)
  1. BENZTROPINE [Suspect]
     Active Substance: BENZTROPINE
     Indication: TARDIVE DYSKINESIA
     Route: 048
     Dates: start: 20150824, end: 20150824

REACTIONS (2)
  - Paranoia [None]
  - Delirium [None]

NARRATIVE: CASE EVENT DATE: 20150824
